FAERS Safety Report 15867508 (Version 4)
Quarter: 2019Q2

REPORT INFORMATION
  Report Type: Report from Study
  Country: DZ (occurrence: DZ)
  Receive Date: 20190125
  Receipt Date: 20190628
  Transmission Date: 20190711
  Serious: Yes (Death, Hospitalization)
  Sender: FDA-Public Use
  Company Number: DZ-BAYER-2019-017460

PATIENT
  Sex: Female

DRUGS (1)
  1. BETAFERON [Suspect]
     Active Substance: INTERFERON BETA-1B
     Indication: MULTIPLE SCLEROSIS
     Dosage: 1 DF 2 TIMES
     Route: 058
     Dates: start: 20190115, end: 201901

REACTIONS (3)
  - Cerebral venous thrombosis [Fatal]
  - Coma [None]
  - Hospitalisation [None]

NARRATIVE: CASE EVENT DATE: 20190121
